FAERS Safety Report 4285800-3 (Version None)
Quarter: 2004Q1

REPORT INFORMATION
  Report Type: 
  Country: None (occurrence: None)
  Receive Date: 20040203
  Receipt Date: 20040122
  Transmission Date: 20041129
  Serious: Yes (Disabling)
  Sender: FDA-Public Use
  Company Number: 002#4#2003-00275(0)

PATIENT
  Age: 42 Year
  Sex: Female

DRUGS (2)
  1. CHLORPHENIRAMINE MALEATE AND PHENYLPROPANOLAMINE HCL [Suspect]
     Indication: NASOPHARYNGITIS
     Dosage: 1 IN 6 H ORAL
     Route: 048
  2. ALBUTEROL [Concomitant]

REACTIONS (5)
  - ANEURYSM [None]
  - HAEMORRHAGIC STROKE [None]
  - HEADACHE [None]
  - HYPERTENSION [None]
  - NAUSEA [None]
